FAERS Safety Report 9306032 (Version 1)
Quarter: 2013Q2

REPORT INFORMATION
  Report Type: Spontaneous
  Country: US (occurrence: US)
  Receive Date: 20130523
  Receipt Date: 20130523
  Transmission Date: 20140414
  Serious: No
  Sender: FDA-Public Use
  Company Number: US-PFIZER INC-2013154933

PATIENT
  Age: 82 Year
  Sex: Male
  Weight: 68.03 kg

DRUGS (1)
  1. ADVIL [Suspect]
     Indication: BACK PAIN
     Dosage: UNK
     Dates: start: 20130519

REACTIONS (1)
  - Drug ineffective [Unknown]
